FAERS Safety Report 25194969 (Version 2)
Quarter: 2025Q2

REPORT INFORMATION
  Report Type: Spontaneous
  Country: FR (occurrence: FR)
  Receive Date: 20250415
  Receipt Date: 20250517
  Transmission Date: 20250716
  Serious: Yes (Hospitalization)
  Sender: AMGEN
  Company Number: FR-AMGEN-FRASP2025061778

PATIENT
  Sex: Male

DRUGS (3)
  1. NPLATE [Suspect]
     Active Substance: ROMIPLOSTIM
     Indication: Product used for unknown indication
     Route: 065
  2. NPLATE [Suspect]
     Active Substance: ROMIPLOSTIM
     Route: 065
  3. NPLATE [Suspect]
     Active Substance: ROMIPLOSTIM
     Route: 065

REACTIONS (2)
  - Unevaluable event [Unknown]
  - Accidental exposure to product [Unknown]

NARRATIVE: CASE EVENT DATE: 20250325
